FAERS Safety Report 19688533 (Version 1)
Quarter: 2021Q3

REPORT INFORMATION
  Report Type: Spontaneous
  Country: US (occurrence: US)
  Receive Date: 20210811
  Receipt Date: 20210811
  Transmission Date: 20211014
  Serious: No
  Sender: FDA-Public Use
  Company Number: US-SA-2021SA257911

PATIENT
  Sex: Male

DRUGS (1)
  1. KEVZARA [Suspect]
     Active Substance: SARILUMAB
     Indication: RHEUMATOID ARTHRITIS
     Route: 058
     Dates: start: 20210623

REACTIONS (5)
  - Unevaluable event [Unknown]
  - Muscular weakness [Unknown]
  - Pain in extremity [Unknown]
  - Rash macular [Unknown]
  - Disorientation [Unknown]
